FAERS Safety Report 18811891 (Version 1)
Quarter: 2021Q1

REPORT INFORMATION
  Report Type: Spontaneous
  Country: CA (occurrence: CA)
  Receive Date: 20210129
  Receipt Date: 20210129
  Transmission Date: 20210419
  Serious: Yes (Other)
  Sender: FDA-Public Use
  Company Number: CA-PURDUE-USA-2020-0201701

PATIENT

DRUGS (6)
  1. OXYCONTIN [Suspect]
     Active Substance: OXYCODONE HYDROCHLORIDE
     Dosage: 80 MG, BID
     Route: 048
     Dates: start: 200710
  2. OXYNEO [Suspect]
     Active Substance: OXYCODONE
     Indication: BACK PAIN
     Dosage: UNK
     Route: 048
     Dates: start: 201203
  3. LYRICA [Concomitant]
     Active Substance: PREGABALIN
     Indication: BACK PAIN
     Dosage: UNK
     Route: 065
  4. FENTANYL. [Concomitant]
     Active Substance: FENTANYL
     Indication: BACK PAIN
     Dosage: UNK
     Route: 065
  5. CESAMET [Suspect]
     Active Substance: NABILONE
     Indication: PAIN
     Dosage: 1 MG, DAILY
     Route: 065
     Dates: start: 200710
  6. OXYCONTIN [Suspect]
     Active Substance: OXYCODONE HYDROCHLORIDE
     Indication: BACK PAIN
     Dosage: 40 MG, BID
     Route: 048
     Dates: start: 200510

REACTIONS (33)
  - Drug dependence [Not Recovered/Not Resolved]
  - Dental caries [Unknown]
  - Sleep deficit [Unknown]
  - Nausea [Unknown]
  - Arrhythmia [Unknown]
  - Sexual dysfunction [Unknown]
  - Asthenia [Unknown]
  - Anger [Unknown]
  - Withdrawal syndrome [Unknown]
  - Insomnia [Unknown]
  - Intervertebral disc protrusion [Unknown]
  - Back pain [Unknown]
  - Muscle spasms [Unknown]
  - Fear [Unknown]
  - Aggression [Unknown]
  - Depression [Unknown]
  - Headache [Unknown]
  - Emotional distress [Unknown]
  - Yawning [Unknown]
  - Epistaxis [Unknown]
  - Palpitations [Unknown]
  - Vomiting [Unknown]
  - Bradyphrenia [Unknown]
  - Tremor [Unknown]
  - CSF pressure increased [Unknown]
  - Anxiety [Unknown]
  - Fatigue [Unknown]
  - Stress [Unknown]
  - Inappropriate schedule of product administration [Unknown]
  - Neuralgia [Unknown]
  - Disturbance in attention [Unknown]
  - Illness [Unknown]
  - Sneezing [Unknown]
